FAERS Safety Report 6835638-5 (Version None)
Quarter: 2010Q3

REPORT INFORMATION
  Report Type: 
  Country: None (occurrence: None)
  Receive Date: 20100713
  Receipt Date: 20100706
  Transmission Date: 20110219
  Serious: Yes (Other)
  Sender: FDA-Public Use
  Company Number: RO-ASTRAZENECA-2010SE31216

PATIENT
  Age: 18002 Day
  Sex: Male
  Weight: 92 kg

DRUGS (2)
  1. SEROQUEL XR [Suspect]
     Indication: SCHIZOAFFECTIVE DISORDER
     Route: 048
     Dates: start: 20100226, end: 20100427
  2. VALPROATE SODIUM [Concomitant]
     Indication: SCHIZOAFFECTIVE DISORDER
     Route: 048
     Dates: start: 20100107, end: 20100427

REACTIONS (2)
  - BLADDER DILATATION [None]
  - URINARY RETENTION [None]
